FAERS Safety Report 15768011 (Version 1)
Quarter: 2018Q4

REPORT INFORMATION
  Report Type: Spontaneous
  Country: CH (occurrence: CH)
  Receive Date: 20181227
  Receipt Date: 20181227
  Transmission Date: 20190205
  Serious: Yes (Other)
  Sender: FDA-Public Use
  Company Number: CH-009507513-1812CHE009009

PATIENT
  Age: 56 Year
  Sex: Male

DRUGS (2)
  1. TEMODAL [Suspect]
     Active Substance: TEMOZOLOMIDE
     Dosage: 75 MG/M2 (147 MG FOR 1.96 M2) ONCE PER DAY FOR 42 DAYS
     Dates: start: 20181022, end: 20181126
  2. ACETAMINOPHEN. [Concomitant]
     Active Substance: ACETAMINOPHEN
     Dosage: AS NECESSARY; IRREGULAR INTAKE OF UNKNOWN DOSAGE BUT WITHOUT ANY NOTION OF ABUSE

REACTIONS (1)
  - Cholestatic liver injury [Recovering/Resolving]

NARRATIVE: CASE EVENT DATE: 20181126
